FAERS Safety Report 4278472-5 (Version None)
Quarter: 2004Q1

REPORT INFORMATION
  Report Type: 
  Country: None (occurrence: None)
  Receive Date: 20040123
  Receipt Date: 20040109
  Transmission Date: 20041129
  Serious: Yes (Life-Threatening, Hospitalization)
  Sender: FDA-Public Use
  Company Number: WAES 0401DNK00009

PATIENT
  Age: 74 Year
  Sex: Male

DRUGS (2)
  1. VIOXX [Suspect]
     Route: 048
     Dates: start: 20031101, end: 20031210
  2. TRAMADOL HYDROCHLORIDE [Concomitant]
     Indication: BACK PAIN
     Route: 048
     Dates: start: 20031101

REACTIONS (3)
  - ACUTE MYOCARDIAL INFARCTION [None]
  - ANGINA PECTORIS [None]
  - LOW DENSITY LIPOPROTEIN INCREASED [None]
